FAERS Safety Report 4289854-X (Version None)
Quarter: 2004Q1

REPORT INFORMATION
  Report Type: 
  Country: None (occurrence: None)
  Receive Date: 20040209
  Receipt Date: 20030623
  Transmission Date: 20041129
  Serious: No
  Sender: FDA-Public Use
  Company Number: US-GLAXOSMITHKLINE-A0413585A

PATIENT
  Age: 16 Year
  Sex: Female

DRUGS (4)
  1. PAXIL [Suspect]
     Route: 048
     Dates: start: 20030617
  2. SEREVENT [Concomitant]
  3. ELAVIL [Concomitant]
  4. ZYRTEC-D 12 HOUR [Concomitant]

REACTIONS (2)
  - HYPOAESTHESIA ORAL [None]
  - MOUTH ULCERATION [None]
